FAERS Safety Report 5153430-7 (Version None)
Quarter: 2006Q4

REPORT INFORMATION
  Report Type: 
  Country: None (occurrence: None)
  Receive Date: 20061114
  Receipt Date: 20061107
  Transmission Date: 20070319
  Serious: Yes (Hospitalization)
  Sender: FDA-Public Use
  Company Number: TAP2006Q00363

PATIENT
  Age: 63 Year
  Sex: Male

DRUGS (10)
  1. LUPRON DEPOT-4 [Suspect]
     Indication: PROSTATE CANCER
     Dosage: 30 MG, ONCE, INJECTION
     Dates: start: 20051116, end: 20051116
  2. CASODEX [Concomitant]
  3. NOVO METOPROLOL (METOPROLOL) [Concomitant]
  4. COLCHICINE (COLCHICINE) [Concomitant]
  5. APO PREDNISONE (PREDNISONE) [Concomitant]
  6. APO-ALLOPURINOL (ALLOPURINOL) [Concomitant]
  7. ONE ALPHA (ALFACALCIDOL) [Concomitant]
  8. LIPITOR [Concomitant]
  9. APO-FUROSEMIDE (FUROSEMIDE) [Concomitant]
  10. K-DUR 10 [Concomitant]

REACTIONS (3)
  - CONVULSION [None]
  - KIDNEY INFECTION [None]
  - KIDNEY TRANSPLANT REJECTION [None]
